FAERS Safety Report 9894695 (Version 7)
Quarter: 2015Q4

REPORT INFORMATION
  Report Type: Spontaneous
  Country: US (occurrence: US)
  Receive Date: 20140213
  Receipt Date: 20151015
  Transmission Date: 20160305
  Serious: Yes (Death, Life-Threatening, Hospitalization, Disabling, Other)
  Sender: FDA-Public Use
  Company Number: US-MERCK-1402USA004777

PATIENT
  Sex: Male
  Weight: 86.17 kg

DRUGS (2)
  1. METFORMIN [Concomitant]
     Active Substance: METFORMIN HYDROCHLORIDE
     Indication: TYPE 2 DIABETES MELLITUS
     Dosage: 1000 MG, QD
     Dates: start: 20120313, end: 20130705
  2. JANUVIA [Suspect]
     Active Substance: SITAGLIPTIN PHOSPHATE
     Indication: TYPE 2 DIABETES MELLITUS
     Dosage: 100 MG, QD
     Route: 048
     Dates: start: 20120319, end: 20130705

REACTIONS (28)
  - Hyperlipidaemia [Unknown]
  - Urinary tract obstruction [Not Recovered/Not Resolved]
  - Adenocarcinoma [Not Recovered/Not Resolved]
  - Renal cyst [Unknown]
  - Hypertension [Not Recovered/Not Resolved]
  - Adenocarcinoma pancreas [Not Recovered/Not Resolved]
  - Pain [Unknown]
  - Bile duct stent insertion [Unknown]
  - Bile duct stent insertion [Unknown]
  - Haemorrhage [Unknown]
  - Haemorrhagic anaemia [Unknown]
  - Benign prostatic hyperplasia [Not Recovered/Not Resolved]
  - Upper gastrointestinal haemorrhage [Recovered/Resolved]
  - Death [Fatal]
  - Bile duct stent insertion [Unknown]
  - Jaundice cholestatic [Not Recovered/Not Resolved]
  - Bile duct stent insertion [Unknown]
  - Atelectasis [Unknown]
  - Bile duct stent insertion [Unknown]
  - Bile duct stent insertion [Unknown]
  - Sleep apnoea syndrome [Unknown]
  - Hiatus hernia [Unknown]
  - Hypotension [Not Recovered/Not Resolved]
  - Chronic kidney disease [Not Recovered/Not Resolved]
  - Arthritis [Unknown]
  - Haemobilia [Recovered/Resolved]
  - Pleural effusion [Unknown]
  - Pulmonary mass [Unknown]

NARRATIVE: CASE EVENT DATE: 20130523
